FAERS Safety Report 24908308 (Version 2)
Quarter: 2025Q1

REPORT INFORMATION
  Report Type: Report from Study
  Country: US (occurrence: US)
  Receive Date: 20250131
  Receipt Date: 20250213
  Transmission Date: 20250408
  Serious: Yes (Other)
  Sender: ABBVIE
  Company Number: US-ABBVIE-6109002

PATIENT
  Age: 70 Year
  Sex: Male
  Weight: 72 kg

DRUGS (1)
  1. HUMIRA [Suspect]
     Active Substance: ADALIMUMAB
     Indication: Rheumatoid arthritis
     Dosage: CITRATE FREE; FORM STRENGTH: 40 MILLIGRAM
     Route: 058
     Dates: start: 202405, end: 20241225

REACTIONS (9)
  - Dislocation of vertebra [Recovering/Resolving]
  - Pain in extremity [Recovered/Resolved]
  - Paraesthesia [Recovered/Resolved]
  - Neck pain [Recovering/Resolving]
  - Arthralgia [Recovering/Resolving]
  - Spinal deformity [Recovered/Resolved]
  - Hypoaesthesia [Recovered/Resolved]
  - Pain [Recovering/Resolving]
  - Incision site pain [Recovering/Resolving]

NARRATIVE: CASE EVENT DATE: 20240101
